FAERS Safety Report 20896269 (Version 1)
Quarter: 2022Q2

REPORT INFORMATION
  Report Type: Spontaneous
  Country: US (occurrence: None)
  Receive Date: 20220531
  Receipt Date: 20220531
  Transmission Date: 20220721
  Serious: No
  Sender: FDA-Public Use
  Company Number: None

PATIENT
  Age: 60 Year
  Sex: Male
  Weight: 98.16 kg

DRUGS (10)
  1. VOTRIENT [Suspect]
     Active Substance: PAZOPANIB HYDROCHLORIDE
     Indication: Renal cancer
     Dosage: FREQUENCY : DAILY;?
     Route: 048
     Dates: start: 20220321, end: 20220511
  2. ASPIRIN [Concomitant]
  3. CYCLOBENZAPRINE [Concomitant]
  4. ELIQUIS [Concomitant]
  5. GABAPENTIN [Concomitant]
  6. LENVIMA [Concomitant]
  7. LIPITOR [Concomitant]
  8. METOPROLOL [Concomitant]
  9. NORVASC [Concomitant]
  10. OXYCODONE [Concomitant]

REACTIONS (1)
  - Hepatic enzyme increased [None]
